FAERS Safety Report 4290496-0 (Version None)
Quarter: 2004Q1

REPORT INFORMATION
  Report Type: 
  Country: None (occurrence: None)
  Receive Date: 20040126
  Receipt Date: 20030902
  Transmission Date: 20041129
  Serious: No
  Sender: FDA-Public Use
  Company Number: USA030434354

PATIENT
  Age: 55 Year
  Sex: Female
  Weight: 61 kg

DRUGS (4)
  1. FORTEO [Suspect]
     Dates: end: 20030802
  2. VERAPAMIL [Concomitant]
  3. AMERGE [Concomitant]
  4. PROTONEX [Concomitant]

REACTIONS (5)
  - DYSPHAGIA [None]
  - INJECTION SITE HAEMORRHAGE [None]
  - NAUSEA [None]
  - PHARYNGOLARYNGEAL PAIN [None]
  - SENSATION OF FOREIGN BODY [None]
